FAERS Safety Report 18284697 (Version 1)
Quarter: 2020Q3

REPORT INFORMATION
  Report Type: Spontaneous
  Country: US (occurrence: US)
  Receive Date: 20200918
  Receipt Date: 20200918
  Transmission Date: 20201103
  Serious: No
  Sender: FDA-Public Use
  Company Number: US-PFIZER INC-2019345625

PATIENT
  Age: 78 Year
  Sex: Female
  Weight: 86.2 kg

DRUGS (2)
  1. REVATIO [Suspect]
     Active Substance: SILDENAFIL CITRATE
     Indication: PULMONARY HYPERTENSION
     Dosage: 20 MG, 3X/DAY
     Route: 048
  2. REVATIO [Suspect]
     Active Substance: SILDENAFIL CITRATE
     Indication: PULMONARY ARTERIAL HYPERTENSION
     Dosage: 40 MG, 3X/DAY ( 20 MG TAKE 2 TABLETS BY MOUTH 3 TIMES PER DAY)
     Route: 048

REACTIONS (3)
  - Product use issue [Unknown]
  - Memory impairment [Unknown]
  - Off label use [Unknown]
